FAERS Safety Report 17943692 (Version 2)
Quarter: 2020Q3

REPORT INFORMATION
  Report Type: Spontaneous
  Country: US (occurrence: US)
  Receive Date: 20200625
  Receipt Date: 20200825
  Transmission Date: 20201103
  Serious: No
  Sender: FDA-Public Use
  Company Number: US-TAKEDA-2020TUS027748

PATIENT
  Age: 92 Year
  Sex: Female

DRUGS (1)
  1. NINLARO [Suspect]
     Active Substance: IXAZOMIB CITRATE
     Indication: PLASMA CELL MYELOMA
     Dosage: 3 MILLIGRAM
     Route: 048
     Dates: start: 20200609

REACTIONS (5)
  - Depressed mood [Unknown]
  - Crying [Unknown]
  - Agitation [Unknown]
  - Product administration error [Unknown]
  - Confusional state [Unknown]

NARRATIVE: CASE EVENT DATE: 20200621
